FAERS Safety Report 24830957 (Version 3)
Quarter: 2025Q1

REPORT INFORMATION
  Report Type: Spontaneous
  Country: US (occurrence: US)
  Receive Date: 20250110
  Receipt Date: 20250122
  Transmission Date: 20250409
  Serious: Yes (Hospitalization, Other)
  Sender: AMGEN
  Company Number: US-AMGEN-USASP2025003712

PATIENT

DRUGS (2)
  1. PROLIA [Suspect]
     Active Substance: DENOSUMAB
     Indication: Osteogenesis imperfecta
     Route: 065
  2. ROMOSOZUMAB [Suspect]
     Active Substance: ROMOSOZUMAB
     Indication: Osteogenesis imperfecta
     Route: 065

REACTIONS (10)
  - Hip fracture [Unknown]
  - Femur fracture [Unknown]
  - Spinal fracture [Unknown]
  - Unevaluable event [Unknown]
  - Drug ineffective for unapproved indication [Unknown]
  - Tibia fracture [Unknown]
  - Fibula fracture [Unknown]
  - Forearm fracture [Unknown]
  - Limb fracture [Unknown]
  - Off label use [Unknown]
